FAERS Safety Report 7746376-9 (Version None)
Quarter: 2011Q3

REPORT INFORMATION
  Report Type: 
  Country: None (occurrence: None)
  Receive Date: 20110913
  Receipt Date: 20110913
  Transmission Date: 20111222
  Serious: Yes (Other)
  Sender: FDA-Public Use
  Company Number: None

PATIENT
  Sex: Female

DRUGS (20)
  1. AZOPT [Concomitant]
     Route: 047
  2. TRAVASTAN [Concomitant]
  3. ALLOPURINOL [Suspect]
     Indication: BLOOD URIC ACID INCREASED
     Dosage: ONE TABLET
     Route: 048
     Dates: start: 20110605, end: 20110822
  4. BETAPASE [Concomitant]
  5. FUROSEMIDE [Concomitant]
  6. LANTUS [Concomitant]
  7. MULTI-VITAMIN [Concomitant]
  8. FISH OIL [Concomitant]
     Route: 048
  9. FISH OIL [Concomitant]
  10. PILOCARPINE 4% [Concomitant]
     Route: 047
  11. BENICAR [Concomitant]
  12. LEVOTHYROXINE SODIUM [Concomitant]
  13. BENICAR [Concomitant]
  14. HUMALOG QUICK PEN [Concomitant]
  15. CO-Q10 [Concomitant]
  16. ASCORBIC ACID [Concomitant]
  17. AMITRIPTYLINE HCL [Concomitant]
  18. VITAMINE E [Concomitant]
  19. POTASSIUM CHLORIDE [Concomitant]
  20. VITAMIN D [Concomitant]
     Route: 048

REACTIONS (2)
  - AGEUSIA [None]
  - VOMITING [None]
